FAERS Safety Report 13698037 (Version 1)
Quarter: 2017Q2

REPORT INFORMATION
  Report Type: Spontaneous
  Country: US (occurrence: US)
  Receive Date: 20170628
  Receipt Date: 20170628
  Transmission Date: 20170830
  Serious: No
  Sender: FDA-Public Use
  Company Number: US-MYLANLABS-2016M1022856

PATIENT
  Sex: Female

DRUGS (1)
  1. VALACICLOVIR [Suspect]
     Active Substance: VALACYCLOVIR HYDROCHLORIDE
     Indication: GENITAL HERPES
     Dosage: UNK

REACTIONS (5)
  - Drug ineffective [Unknown]
  - Genital pain [Unknown]
  - Oral pain [Unknown]
  - Gingival blister [Unknown]
  - Reaction to drug excipients [Unknown]
